FAERS Safety Report 9780801 (Version 3)
Quarter: 2014Q1

REPORT INFORMATION
  Report Type: Spontaneous
  Country: US (occurrence: US)
  Receive Date: 20131224
  Receipt Date: 20140317
  Transmission Date: 20141002
  Serious: Yes (Hospitalization)
  Sender: FDA-Public Use
  Company Number: PHEH2013US026196

PATIENT
  Sex: Male
  Weight: 136.2 kg

DRUGS (3)
  1. CLOZARIL [Suspect]
     Indication: SCHIZOPHRENIA
     Dosage: UNK
  2. CLOZARIL [Suspect]
     Dosage: 50 MG, BID
  3. CLOZARIL [Suspect]
     Dosage: UNK

REACTIONS (1)
  - Ankle fracture [Unknown]
